FAERS Safety Report 23640016 (Version 4)
Quarter: 2024Q3

REPORT INFORMATION
  Report Type: Report from Study
  Country: US (occurrence: US)
  Receive Date: 20240317
  Receipt Date: 20240701
  Transmission Date: 20241017
  Serious: No
  Sender: SANOFI AVENTIS
  Company Number: US-SA-SAC20240311000350

PATIENT
  Age: 48 Year
  Sex: Male

DRUGS (2)
  1. DUPILUMAB [Suspect]
     Active Substance: DUPILUMAB
     Indication: Dermatitis atopic
     Dosage: 600 MG, 1X
     Route: 058
     Dates: start: 20240215, end: 20240215
  2. DUPILUMAB [Suspect]
     Active Substance: DUPILUMAB
     Dosage: 300 MG, QOW
     Route: 058
     Dates: start: 20240229

REACTIONS (4)
  - Insomnia [Unknown]
  - Eczema [Recovered/Resolved]
  - Dermatitis atopic [Recovering/Resolving]
  - Lack of injection site rotation [Unknown]

NARRATIVE: CASE EVENT DATE: 20240101
